FAERS Safety Report 13515079 (Version 1)
Quarter: 2017Q2

REPORT INFORMATION
  Report Type: Spontaneous
  Country: US (occurrence: US)
  Receive Date: 20170504
  Receipt Date: 20170504
  Transmission Date: 20170830
  Serious: No
  Sender: FDA-Public Use
  Company Number: US-GLAXOSMITHKLINE-US2017GSK065043

PATIENT
  Age: 62 Year
  Sex: Female

DRUGS (1)
  1. LOVAZA [Suspect]
     Active Substance: OMEGA-3-ACID ETHYL ESTERS

REACTIONS (3)
  - Wheezing [Unknown]
  - Drug hypersensitivity [Unknown]
  - Chest discomfort [Unknown]

NARRATIVE: CASE EVENT DATE: 20091103
